FAERS Safety Report 8468779-X (Version None)
Quarter: 2012Q2

REPORT INFORMATION
  Report Type: 
  Country: None (occurrence: None)
  Receive Date: 20120626
  Receipt Date: 20120618
  Transmission Date: 20120825
  Serious: Yes (Hospitalization)
  Sender: FDA-Public Use
  Company Number: CA-JNJFOC-20120608736

PATIENT
  Sex: Male
  Weight: 66 kg

DRUGS (4)
  1. FLAGYL [Concomitant]
     Route: 065
  2. REMICADE [Suspect]
     Indication: CROHN'S DISEASE
     Route: 042
     Dates: start: 20101005
  3. CORTICOSTEROID UNSPECIFIED [Concomitant]
     Route: 042
     Dates: start: 20120603, end: 20120610
  4. PAIN KILLERS [Concomitant]
     Route: 065

REACTIONS (2)
  - ADHESION [None]
  - GALLBLADDER DISORDER [None]
